FAERS Safety Report 21594222 (Version 1)
Quarter: 2022Q4

REPORT INFORMATION
  Report Type: Spontaneous
  Country: US (occurrence: None)
  Receive Date: 20221115
  Receipt Date: 20221115
  Transmission Date: 20230113
  Serious: No
  Sender: FDA-Public Use
  Company Number: 2022A363320

PATIENT
  Sex: Female

DRUGS (1)
  1. BUDESONIDE\FORMOTEROL\GLYCOPYRRONIUM [Suspect]
     Active Substance: BUDESONIDE\FORMOTEROL\GLYCOPYRRONIUM
     Dosage: 160-9-4.8 MCG
     Route: 055

REACTIONS (6)
  - Lung disorder [Unknown]
  - Dyspnoea [Unknown]
  - Malaise [Unknown]
  - Intentional product misuse [Unknown]
  - Inability to afford medication [Unknown]
  - Product dose omission issue [Unknown]
